FAERS Safety Report 8906228 (Version 1)
Quarter: 2012Q4

REPORT INFORMATION
  Report Type: Spontaneous
  Country: US (occurrence: None)
  Receive Date: 20121112
  Receipt Date: 20121112
  Transmission Date: 20130627
  Serious: Yes (Life-Threatening, Hospitalization, Other)
  Sender: FDA-Public Use
  Company Number: None

PATIENT
  Age: 34 Year
  Sex: Female
  Weight: 58.51 kg

DRUGS (2)
  1. LOSARTAN [Suspect]
     Indication: BLOOD PRESSURE HIGH
     Dosage: 1 Tablet Once daily po
     Route: 048
     Dates: start: 20121020, end: 20121110
  2. LOSARTAN [Suspect]
     Indication: HYPERTENSION
     Dosage: 1 Tablet Once daily po
     Route: 048
     Dates: start: 20121020, end: 20121110

REACTIONS (6)
  - Eyelid oedema [None]
  - Headache [None]
  - Lip swelling [None]
  - Local swelling [None]
  - Oedema peripheral [None]
  - Oedema peripheral [None]
